FAERS Safety Report 8603920-7 (Version None)
Quarter: 2012Q3

REPORT INFORMATION
  Report Type: 
  Country: None (occurrence: None)
  Receive Date: 20120806
  Receipt Date: 20120725
  Transmission Date: 20120928
  Serious: Yes (Death, Other)
  Sender: FDA-Public Use
  Company Number: 2012MA009067

PATIENT
  Age: 43 Year
  Sex: Female

DRUGS (1)
  1. FEVERALL [Suspect]
     Dosage: 26 GM, UNK

REACTIONS (7)
  - TOXICITY TO VARIOUS AGENTS [None]
  - METABOLIC ACIDOSIS [None]
  - HYPOTENSION [None]
  - COMA [None]
  - CEREBRAL HAEMORRHAGE [None]
  - LACTIC ACIDOSIS [None]
  - CEREBRAL INFARCTION [None]
